FAERS Safety Report 18147752 (Version 1)
Quarter: 2020Q3

REPORT INFORMATION
  Report Type: Spontaneous
  Country: CA (occurrence: CA)
  Receive Date: 20200813
  Receipt Date: 20200813
  Transmission Date: 20201103
  Serious: Yes (Hospitalization)
  Sender: FDA-Public Use
  Company Number: CA-TEVA-2020-CA-1812830

PATIENT
  Age: 87 Year
  Sex: Female

DRUGS (14)
  1. PRAMIPEXOLE. [Concomitant]
     Active Substance: PRAMIPEXOLE
  2. IRON [Concomitant]
     Active Substance: IRON
  3. TRAZODONE [Concomitant]
     Active Substance: TRAZODONE HYDROCHLORIDE
  4. NITROFURANTOIN. [Concomitant]
     Active Substance: NITROFURANTOIN
  5. TYLENOL [Concomitant]
     Active Substance: ACETAMINOPHEN
  6. PRAMIPEXOLE. [Suspect]
     Active Substance: PRAMIPEXOLE
  7. ACH?PREGABALIN [Suspect]
     Active Substance: PREGABALIN
  8. ATROPINEW/DIPHENOXYLATE/00034001/ [Concomitant]
  9. CELECOXIB. [Concomitant]
     Active Substance: CELECOXIB
  10. VENLAFAXINE XR [Concomitant]
     Active Substance: VENLAFAXINE HYDROCHLORIDE
  11. PANTOLOC /01263204 [Concomitant]
  12. RISPERIDONE. [Concomitant]
     Active Substance: RISPERIDONE
  13. LOPERAMIDE [Concomitant]
     Active Substance: LOPERAMIDE
  14. PERINDOPRIL [Concomitant]
     Active Substance: PERINDOPRIL

REACTIONS (2)
  - Altered state of consciousness [Recovered/Resolved]
  - Delirium [Recovered/Resolved]
